FAERS Safety Report 4481381-X (Version None)
Quarter: 2004Q4

REPORT INFORMATION
  Report Type: 
  Country: None (occurrence: None)
  Receive Date: 20040923
  Receipt Date: 20040713
  Transmission Date: 20050328
  Serious: No
  Sender: FDA-Public Use
  Company Number: USA031152804

PATIENT
  Age: 75 Year
  Sex: Female
  Weight: 86 kg

DRUGS (6)
  1. FORTEO [Suspect]
     Indication: OSTEOPOROSIS
     Dosage: 20 UG DAY
     Dates: start: 20031001
  2. PLAVIX [Concomitant]
  3. ASPIRIN [Concomitant]
  4. CALCIUM PLUS D [Concomitant]
  5. CORAL CALCIUM DAILY [Concomitant]
  6. MAGNESIUM [Concomitant]

REACTIONS (15)
  - ACROCHORDON EXCISION [None]
  - ASTHENIA [None]
  - BREAST MASS [None]
  - FOOD INTOLERANCE [None]
  - INJECTION SITE ERYTHEMA [None]
  - INJECTION SITE HAEMORRHAGE [None]
  - MAMMOGRAM [None]
  - OEDEMA PERIPHERAL [None]
  - PAIN [None]
  - RASH ERYTHEMATOUS [None]
  - SINUS OPERATION [None]
  - SINUSITIS [None]
  - SKIN IRRITATION [None]
  - SWELLING FACE [None]
  - WEIGHT INCREASED [None]
